FAERS Safety Report 5324338-9 (Version None)
Quarter: 2007Q2

REPORT INFORMATION
  Report Type: 
  Country: None (occurrence: None)
  Receive Date: 20070509
  Receipt Date: 20070427
  Transmission Date: 20071010
  Serious: No
  Sender: FDA-Public Use
  Company Number: 2007-157363-NL

PATIENT
  Age: 25 Year
  Sex: Female

DRUGS (1)
  1. NUVARING [Suspect]
     Dosage: DF;
     Dates: start: 20050201, end: 20070425

REACTIONS (7)
  - BLOOD CREATINE PHOSPHOKINASE INCREASED [None]
  - CONTUSION [None]
  - CONVULSION [None]
  - FALL [None]
  - HEADACHE [None]
  - MUSCLE TIGHTNESS [None]
  - TONGUE BITING [None]
